FAERS Safety Report 7652652-0 (Version None)
Quarter: 2011Q3

REPORT INFORMATION
  Report Type: 
  Country: None (occurrence: None)
  Receive Date: 20110803
  Receipt Date: 20110728
  Transmission Date: 20111222
  Serious: Yes (Other)
  Sender: FDA-Public Use
  Company Number: DE-B.I. PHARMACEUTICALS,INC./RIDGEFIELD-2011-DE-04337DE

PATIENT
  Sex: Male
  Weight: 80 kg

DRUGS (6)
  1. SIMVASTATIN [Suspect]
     Dosage: 600 MG
     Route: 048
  2. OMEPRAZOLE [Suspect]
     Dosage: 20 MG
     Route: 048
  3. LYRICA [Suspect]
     Dosage: 1500 MG
     Route: 048
  4. AGGRENOX [Suspect]
     Dosage: 1X3-4 TABLETS
     Route: 048
  5. CITALOPRAM HYDROBROMIDE [Suspect]
     Dosage: 80 MG
     Route: 048
  6. TAMSULOSIN HCL [Suspect]
     Dosage: 0.8 MG
     Route: 048

REACTIONS (5)
  - SUICIDE ATTEMPT [None]
  - ABDOMINAL PAIN [None]
  - TACHYCARDIA [None]
  - ELECTROCARDIOGRAM CHANGE [None]
  - SLEEP DISORDER [None]
